FAERS Safety Report 7390191-5 (Version None)
Quarter: 2011Q2

REPORT INFORMATION
  Report Type: 
  Country: None (occurrence: None)
  Receive Date: 20110401
  Receipt Date: 20110318
  Transmission Date: 20111010
  Serious: Yes (Disabling, Other)
  Sender: FDA-Public Use
  Company Number: ES-ELI_LILLY_AND_COMPANY-ES201103006383

PATIENT
  Sex: Female
  Weight: 52 kg

DRUGS (7)
  1. LORAZEPAM [Concomitant]
     Indication: INSOMNIA
     Dosage: 0.5 MG, NIGHT
     Route: 048
  2. VISCOFRESH [Concomitant]
     Dosage: UNK, EACH EVENING
  3. FORTEO [Suspect]
     Indication: OSTEOPOROSIS
     Dosage: 20 UG, QD
     Dates: start: 20091221
  4. IBUPROFEN [Concomitant]
     Indication: PAIN
     Dosage: UNK, PRN
     Route: 048
  5. OMEPRAZOLE [Concomitant]
     Indication: GASTRIC ULCER
     Dosage: 20 MG, QD
     Route: 048
  6. DIAZEPAM [Concomitant]
     Indication: MUSCLE SPASMS
     Dosage: 2.5 MG, QD
     Route: 048
  7. VISCOFRESH [Concomitant]
     Indication: SIGHT DISABILITY
     Dosage: UNK, EACH MORNING

REACTIONS (1)
  - BLINDNESS [None]
